FAERS Safety Report 23251879 (Version 1)
Quarter: 2023Q4

REPORT INFORMATION
  Report Type: Spontaneous
  Country: SK (occurrence: SK)
  Receive Date: 20231201
  Receipt Date: 20231201
  Transmission Date: 20240110
  Serious: Yes (Life-Threatening, Hospitalization, Other)
  Sender: FDA-Public Use
  Company Number: None

PATIENT

DRUGS (2)
  1. FIRMAGON [Suspect]
     Active Substance: DEGARELIX ACETATE
     Indication: Prostate cancer
     Dosage: THE 1ST DOSE
     Route: 058
     Dates: start: 202302
  2. FIRMAGON [Suspect]
     Active Substance: DEGARELIX ACETATE
     Dosage: THE 2ND - 6TH DOSE
     Route: 058
     Dates: end: 202308

REACTIONS (1)
  - Toxic epidermal necrolysis [Recovered/Resolved]

NARRATIVE: CASE EVENT DATE: 20230831
